FAERS Safety Report 8075198-7 (Version None)
Quarter: 2012Q1

REPORT INFORMATION
  Report Type: 
  Country: None (occurrence: None)
  Receive Date: 20120127
  Receipt Date: 20120114
  Transmission Date: 20120608
  Serious: Yes (Other)
  Sender: FDA-Public Use
  Company Number: US-PAR PHARMACEUTICAL, INC-2012SCPR003927

PATIENT

DRUGS (3)
  1. METRONIDAZOLE [Suspect]
     Indication: IMMUNE TOLERANCE INDUCTION
     Dosage: UNK UNK, UNKNOWN
  2. METRONIDAZOLE [Suspect]
     Dosage: 10 MG (DOSE 6)
     Route: 048
  3. METRONIDAZOLE [Suspect]
     Indication: TRICHOMONIASIS
     Dosage: 0.0025-1000 MG OVER 12 DOSES, WITH A 30-MINUTE INTERVAL BETWEEN EACH DOSE
     Route: 048

REACTIONS (3)
  - TOXICITY TO VARIOUS AGENTS [None]
  - PARAESTHESIA ORAL [None]
  - URTICARIA [None]
